FAERS Safety Report 6332885-6 (Version None)
Quarter: 2009Q3

REPORT INFORMATION
  Report Type: 
  Country: None (occurrence: None)
  Receive Date: 20090828
  Receipt Date: 20090724
  Transmission Date: 20100115
  Serious: No
  Sender: FDA-Public Use
  Company Number: US-BAYER-200912936BCC

PATIENT
  Age: 65 Year
  Sex: Male
  Weight: 68 kg

DRUGS (2)
  1. ALEVE [Suspect]
     Indication: DRUG USE FOR UNKNOWN INDICATION
     Route: 048
  2. BENADRYL [Suspect]
     Indication: HYPERSENSITIVITY
     Dosage: ONE TABLET EVERY 4-6 HOURS
     Route: 048

REACTIONS (1)
  - SKIN DISORDER [None]
